FAERS Safety Report 24762766 (Version 1)
Quarter: 2024Q4

REPORT INFORMATION
  Report Type: Spontaneous
  Country: GB (occurrence: GB)
  Receive Date: 20241222
  Receipt Date: 20241222
  Transmission Date: 20250114
  Serious: Yes (Disabling, Other)
  Sender: AUROBINDO
  Company Number: GB-MHRA-34105080

PATIENT
  Age: 75 Year
  Sex: Female
  Weight: 57 kg

DRUGS (5)
  1. ALENDRONIC ACID [Suspect]
     Active Substance: ALENDRONIC ACID
     Indication: Product used for unknown indication
     Dosage: 70 MILLIGRAM
     Route: 048
  2. CHOLECALCIFEROL [Concomitant]
     Active Substance: CHOLECALCIFEROL
     Indication: Product used for unknown indication
     Dosage: UNK [2,000UNIT]
     Route: 065
     Dates: start: 20241108
  3. CALCIUM CARBONATE\CHOLECALCIFEROL [Concomitant]
     Active Substance: CALCIUM CARBONATE\CHOLECALCIFEROL
     Indication: Product used for unknown indication
     Dosage: UNK
     Route: 065
     Dates: start: 20241105
  4. QUETIAPINE [Concomitant]
     Active Substance: QUETIAPINE
     Indication: Product used for unknown indication
     Dosage: 25 MILLIGRAM
     Route: 065
     Dates: start: 20240925
  5. LORAZEPAM [Concomitant]
     Active Substance: LORAZEPAM
     Indication: Product used for unknown indication
     Dosage: 1 MILLIGRAM
     Route: 065
     Dates: start: 20241021

REACTIONS (1)
  - Delirium [Recovering/Resolving]

NARRATIVE: CASE EVENT DATE: 20241105
